FAERS Safety Report 6519107-8 (Version None)
Quarter: 2009Q4

REPORT INFORMATION
  Report Type: 
  Country: None (occurrence: None)
  Receive Date: 20091228
  Receipt Date: 20091222
  Transmission Date: 20100525
  Serious: Yes (Death, Hospitalization, Other)
  Sender: FDA-Public Use
  Company Number: JP-ELI_LILLY_AND_COMPANY-JP200912005375

PATIENT
  Age: 71 Year
  Sex: Male

DRUGS (1)
  1. GEMZAR [Suspect]
     Indication: PANCREATIC CARCINOMA STAGE IV
     Route: 042
     Dates: start: 20080701

REACTIONS (7)
  - ALTERED STATE OF CONSCIOUSNESS [None]
  - ASCITES [None]
  - CACHEXIA [None]
  - HYPERCALCAEMIA [None]
  - METASTASES TO LIVER [None]
  - PARATHYROID HORMONE-RELATED PROTEIN INCREASED [None]
  - SOMNOLENCE [None]
